FAERS Safety Report 18303182 (Version 2)
Quarter: 2025Q2

REPORT INFORMATION
  Report Type: Report from Study
  Country: US (occurrence: US)
  Receive Date: 20200923
  Receipt Date: 20250619
  Transmission Date: 20250716
  Serious: Yes (Death, Hospitalization)
  Sender: AUROBINDO
  Company Number: US-MYLANLABS-2020M1081147

PATIENT
  Age: 23 Year
  Sex: Male

DRUGS (2)
  1. AZITHROMYCIN [Suspect]
     Active Substance: AZITHROMYCIN
     Indication: COVID-19
     Route: 065
  2. HYDROXYCHLOROQUINE [Suspect]
     Active Substance: HYDROXYCHLOROQUINE
     Indication: COVID-19
     Route: 065

REACTIONS (4)
  - Cerebral venous thrombosis [Fatal]
  - Cerebral haemorrhage [Fatal]
  - Hypotension [Fatal]
  - Off label use [Fatal]
